FAERS Safety Report 21438917 (Version 1)
Quarter: 2022Q4

REPORT INFORMATION
  Report Type: Spontaneous
  Country: US (occurrence: None)
  Receive Date: 20221007
  Receipt Date: 20221007
  Transmission Date: 20230113
  Serious: Yes (Hospitalization)
  Sender: FDA-Public Use
  Company Number: None

PATIENT
  Sex: Female

DRUGS (13)
  1. HUMIRA [Suspect]
     Active Substance: ADALIMUMAB
     Indication: Rheumatoid arthritis
     Dosage: OTHER QUANTITY : 40MG/0.4ML;?OTHER FREQUENCY : EVERY 10 DAYS;?
     Route: 058
     Dates: start: 20210715
  2. CEFFINIR CAP [Concomitant]
  3. CHLORTHALID TAB [Concomitant]
  4. ESCITALOPRAM TAB [Concomitant]
  5. FOLIC ACID TAB [Concomitant]
  6. HYDROCORT TAB [Concomitant]
  7. LYRICA CAP [Concomitant]
  8. MELOXICAM TAB [Concomitant]
  9. PLAQUENIL [Concomitant]
     Active Substance: HYDROXYCHLOROQUINE SULFATE
  10. REXULTI TAB [Concomitant]
  11. SIMVASTATIN [Concomitant]
     Active Substance: SIMVASTATIN
  12. TRILEPTAL TAB [Concomitant]
  13. VARENICLINE TAB [Concomitant]

REACTIONS (1)
  - Surgery [None]
